FAERS Safety Report 22076561 (Version 10)
Quarter: 2024Q4

REPORT INFORMATION
  Report Type: Report from Study
  Country: CH (occurrence: CH)
  Receive Date: 20230309
  Receipt Date: 20241219
  Transmission Date: 20250115
  Serious: Yes (Hospitalization)
  Sender: BOEHRINGER INGELHEIM
  Company Number: CH-BoehringerIngelheim-2022-BI-181960

PATIENT
  Age: 68 Year
  Sex: Male
  Weight: 84 kg

DRUGS (11)
  1. OFEV [Suspect]
     Active Substance: NINTEDANIB
     Indication: Pneumoconiosis
     Route: 048
     Dates: start: 20220711, end: 20221018
  2. OFEV [Suspect]
     Active Substance: NINTEDANIB
     Route: 048
     Dates: start: 20221020
  3. ELIQUIS [Concomitant]
     Active Substance: APIXABAN
     Indication: Product used for unknown indication
     Route: 048
     Dates: start: 202305
  4. CANDESARTAN [Concomitant]
     Active Substance: CANDESARTAN
     Indication: Product used for unknown indication
     Dosage: ? TBL/DAY
     Route: 048
  5. ALLOPURINOL [Concomitant]
     Active Substance: ALLOPURINOL
     Indication: Product used for unknown indication
     Dosage: 1/2 TBL/DAY
     Route: 048
  6. Relvar Ellipta 92/22 [Concomitant]
     Indication: Product used for unknown indication
     Dosage: 92/22 HUB
     Route: 055
  7. XARELTO [Concomitant]
     Active Substance: RIVAROXABAN
     Indication: Product used for unknown indication
     Dates: end: 202305
  8. SERENOA REPENS WHOLE [Concomitant]
     Active Substance: SERENOA REPENS WHOLE
     Indication: Product used for unknown indication
     Route: 048
  9. Creon 25?000 Capsules [Concomitant]
     Indication: Product used for unknown indication
     Dosage: AS NECESSARY
  10. Creon 25?000 Capsules [Concomitant]
     Dosage: UNITS KPS
  11. Magnesium Sachet [Concomitant]
     Indication: Product used for unknown indication
     Route: 048

REACTIONS (7)
  - Gastritis [Recovered/Resolved]
  - Wound infection [Recovered/Resolved]
  - Diarrhoea [Not Recovered/Not Resolved]
  - Weight decreased [Recovered/Resolved]
  - Stress [Not Recovered/Not Resolved]
  - Fatigue [Not Recovered/Not Resolved]
  - Abdominal pain upper [Recovered/Resolved]

NARRATIVE: CASE EVENT DATE: 20220715
